FAERS Safety Report 7969205-7 (Version None)
Quarter: 2011Q4

REPORT INFORMATION
  Report Type: 
  Country: None (occurrence: None)
  Receive Date: 20111209
  Receipt Date: 20111206
  Transmission Date: 20120403
  Serious: No
  Sender: FDA-Public Use
  Company Number: US-B.I. PHARMACEUTICALS,INC./RIDGEFIELD-2011-BP-27550BP

PATIENT
  Sex: Female

DRUGS (16)
  1. OXYCODONE HCL [Concomitant]
     Indication: ANALGESIC THERAPY
     Route: 048
  2. VITAMIN D [Concomitant]
     Indication: VITAMIN SUPPLEMENTATION
     Route: 048
  3. GLUCOSAMINE [Concomitant]
     Indication: SUPPLEMENTATION THERAPY
     Route: 048
  4. LISINOPRIL [Concomitant]
     Indication: HYPERTENSION
     Route: 048
  5. LASIX [Concomitant]
     Indication: OEDEMA PERIPHERAL
     Route: 048
  6. TOPROL-XL [Concomitant]
     Indication: HYPERTENSION
     Dosage: 200 MG
     Route: 048
  7. SIMVASTATIN [Concomitant]
     Indication: BLOOD CHOLESTEROL INCREASED
     Dosage: 10 MG
     Route: 048
  8. LYRICA [Concomitant]
     Indication: FIBROMYALGIA
  9. CALCIUM [Concomitant]
     Indication: MINERAL SUPPLEMENTATION
     Route: 048
  10. VITAMIN E [Concomitant]
     Indication: VITAMIN SUPPLEMENTATION
     Route: 048
  11. PRADAXA [Suspect]
     Indication: ATRIAL FIBRILLATION
     Dosage: 300 MG
     Route: 048
     Dates: start: 20111116
  12. LYRICA [Concomitant]
     Indication: NEUROPATHY PERIPHERAL
     Dosage: 300 MG
     Route: 048
  13. ASCORBIC ACID [Concomitant]
     Indication: VITAMIN SUPPLEMENTATION
     Route: 048
  14. CARTIA XT [Concomitant]
     Indication: HYPERTENSION
     Route: 048
  15. SYNTHROID [Concomitant]
     Indication: HYPOTHYROIDISM
     Dosage: 150 MG
     Route: 048
  16. CELEBREX [Concomitant]
     Indication: PAIN
     Dosage: 200 MG
     Route: 048

REACTIONS (2)
  - PAIN [None]
  - ARTHRALGIA [None]
